FAERS Safety Report 13134992 (Version 3)
Quarter: 2017Q1

REPORT INFORMATION
  Report Type: Report from Study
  Country: ES (occurrence: ES)
  Receive Date: 20170120
  Receipt Date: 20170221
  Transmission Date: 20170428
  Serious: Yes (Life-Threatening, Hospitalization)
  Sender: FDA-Public Use
  Company Number: ES-CELGENEUS-ESP-2017013793

PATIENT
  Age: 52 Year
  Sex: Male
  Weight: 83 kg

DRUGS (6)
  1. CC-4047 [Suspect]
     Active Substance: POMALIDOMIDE
     Indication: PLASMA CELL MYELOMA
     Dosage: 4 MILLIGRAM
     Route: 048
     Dates: start: 20160714, end: 20160803
  2. MEDI4736 (DURVALUMAB) [Suspect]
     Active Substance: DURVALUMAB
     Indication: PLASMA CELL MYELOMA
     Dosage: 1500 MILLIGRAM
     Route: 041
     Dates: start: 20160714, end: 20160714
  3. CC-4047 [Suspect]
     Active Substance: POMALIDOMIDE
     Dosage: 4 MILLIGRAM
     Route: 048
     Dates: start: 20161229, end: 20170110
  4. DEXAMETHASONE ORAL [Suspect]
     Active Substance: DEXAMETHASONE
     Indication: PLASMA CELL MYELOMA
     Dosage: 4 MILLIGRAM
     Route: 048
     Dates: start: 20160714, end: 20160804
  5. DEXAMETHASONE ORAL [Suspect]
     Active Substance: DEXAMETHASONE
     Dosage: 40 MILLIGRAM
     Route: 048
     Dates: start: 20161229, end: 20170110
  6. MEDI4736 (DURVALUMAB) [Suspect]
     Active Substance: DURVALUMAB
     Dosage: 1500 MILLIGRAM
     Route: 041
     Dates: start: 20161229, end: 20161229

REACTIONS (2)
  - Bronchospasm [Recovered/Resolved]
  - Respiratory tract infection viral [Recovered/Resolved]

NARRATIVE: CASE EVENT DATE: 20170109
